FAERS Safety Report 21556068 (Version 1)
Quarter: 2022Q4

REPORT INFORMATION
  Report Type: Spontaneous
  Country: CN (occurrence: CN)
  Receive Date: 20221104
  Receipt Date: 20221104
  Transmission Date: 20230112
  Serious: Yes (Other)
  Sender: FDA-Public Use
  Company Number: CN-PFIZER INC-PV202200094871

PATIENT
  Age: 50 Year
  Sex: Female
  Weight: 67 kg

DRUGS (1)
  1. FLUCONAZOLE [Suspect]
     Active Substance: FLUCONAZOLE
     Indication: Vaginal infection
     Dosage: 0.15 G, ONCE EVERY 3 DAYS
     Route: 048
     Dates: start: 20220613, end: 20220616

REACTIONS (5)
  - Dizziness [Recovered/Resolved]
  - Glare [Recovered/Resolved]
  - Tinnitus [Recovered/Resolved]
  - Muscular weakness [Recovered/Resolved]
  - Discomfort [Recovered/Resolved]

NARRATIVE: CASE EVENT DATE: 20220613
